FAERS Safety Report 7318787-7 (Version None)
Quarter: 2011Q1

REPORT INFORMATION
  Report Type: 
  Country: None (occurrence: None)
  Receive Date: 20110228
  Receipt Date: 20100802
  Transmission Date: 20110831
  Serious: No
  Sender: FDA-Public Use
  Company Number: A0862434A

PATIENT
  Age: 34 Year
  Sex: Female

DRUGS (1)
  1. IMITREX [Suspect]
     Indication: MIGRAINE
     Dosage: 1INJ AS REQUIRED
     Route: 058

REACTIONS (2)
  - PRODUCT QUALITY ISSUE [None]
  - INJECTION SITE URTICARIA [None]
